FAERS Safety Report 4617238-0 (Version None)
Quarter: 2005Q1

REPORT INFORMATION
  Report Type: 
  Country: None (occurrence: None)
  Receive Date: 20050323
  Receipt Date: 20050310
  Transmission Date: 20050727
  Serious: Yes (Other)
  Sender: FDA-Public Use
  Company Number: CH-BRISTOL-MYERS SQUIBB COMPANY-12896023

PATIENT
  Age: 74 Year
  Sex: Male

DRUGS (7)
  1. APROVEL TABS 300 MG [Suspect]
     Indication: ESSENTIAL HYPERTENSION
     Route: 048
     Dates: start: 20040505, end: 20040706
  2. DERMOVATE [Suspect]
     Indication: PSORIASIS
     Route: 061
  3. METHYLPREDNISOLONE ACETATE [Suspect]
     Indication: PSORIASIS
     Route: 061
  4. HERBAL PREPARATION [Suspect]
     Indication: HEADACHE
     Route: 048
     Dates: start: 20030101, end: 20041228
  5. DILZEM [Concomitant]
     Indication: ESSENTIAL HYPERTENSION
     Route: 048
  6. PYRALVEX [Concomitant]
     Indication: APHTHOUS STOMATITIS
     Route: 061
  7. VALIUM [Concomitant]
     Route: 048

REACTIONS (5)
  - CUSHING'S SYNDROME [None]
  - GLAUCOMA [None]
  - HYPERTENSION [None]
  - NEUTROPHILIA [None]
  - PSORIASIS [None]
